FAERS Safety Report 11758269 (Version 1)
Quarter: 2015Q4

REPORT INFORMATION
  Report Type: Spontaneous
  Country: US (occurrence: None)
  Receive Date: 20151118
  Receipt Date: 20151118
  Transmission Date: 20160304
  Serious: Yes (Other)
  Sender: FDA-Public Use
  Company Number: None

PATIENT
  Age: 46 Year
  Sex: Female
  Weight: 89.36 kg

DRUGS (8)
  1. XYZAL [Concomitant]
     Active Substance: LEVOCETIRIZINE DIHYDROCHLORIDE
  2. ADVAIR HFA [Concomitant]
     Active Substance: FLUTICASONE PROPIONATE\SALMETEROL XINAFOATE
  3. CRANBERRY PILLS [Concomitant]
  4. MILTI-VITAMINS [Concomitant]
  5. XOPENEX FHA [Concomitant]
  6. MONTELUKAST [Suspect]
     Active Substance: MONTELUKAST SODIUM
     Indication: ASTHMA
     Dosage: 1 PILL
     Route: 048
     Dates: start: 20150906, end: 20150908
  7. IRON [Concomitant]
     Active Substance: IRON
  8. CALCIUM [Concomitant]
     Active Substance: CALCIUM

REACTIONS (1)
  - Asthma [None]

NARRATIVE: CASE EVENT DATE: 20150912
